FAERS Safety Report 4366850-5 (Version None)
Quarter: 2004Q2

REPORT INFORMATION
  Report Type: 
  Country: None (occurrence: None)
  Receive Date: 20040528
  Receipt Date: 20040302
  Transmission Date: 20050107
  Serious: No
  Sender: FDA-Public Use
  Company Number: US-GLAXOSMITHKLINE-A0500835A

PATIENT

DRUGS (1)
  1. BACTROBAN [Suspect]

REACTIONS (1)
  - SKIN DISCOLOURATION [None]
